FAERS Safety Report 8025036 (Version 5)
Quarter: 2013Q4

REPORT INFORMATION
  Report Type: Spontaneous
  Country: JP (occurrence: JP)
  Receive Date: 20110707
  Receipt Date: 20131209
  Transmission Date: 20140711
  Serious: Yes (Death, Life-Threatening, Hospitalization)
  Sender: FDA-Public Use
  Company Number: JP-ROCHE-779701

PATIENT
  Age: 70 Year
  Sex: Male
  Weight: 56 kg

DRUGS (2)
  1. XELODA [Suspect]
     Indication: RECTAL CANCER
     Route: 048
     Dates: start: 20110509, end: 20110521
  2. PYDOXAL [Concomitant]
     Indication: PROPHYLAXIS
     Route: 048
     Dates: start: 20110509, end: 20110521

REACTIONS (10)
  - Febrile neutropenia [Fatal]
  - Neutrophil count decreased [Fatal]
  - Pneumonia [Fatal]
  - Multi-organ failure [Fatal]
  - Oral disorder [Not Recovered/Not Resolved]
  - Palmar-plantar erythrodysaesthesia syndrome [Not Recovered/Not Resolved]
  - Thrombocytopenia [Not Recovered/Not Resolved]
  - Melaena [Recovering/Resolving]
  - Diarrhoea [Unknown]
  - Decreased appetite [Unknown]
